FAERS Safety Report 13145595 (Version 2)
Quarter: 2019Q1

REPORT INFORMATION
  Report Type: Report from Study
  Country: US (occurrence: US)
  Receive Date: 20170124
  Receipt Date: 20190312
  Transmission Date: 20190417
  Serious: Yes (Death, Hospitalization, Disabling, Other)
  Sender: FDA-Public Use
  Company Number: US-SHIRE-US201701264

PATIENT
  Age: 63 Year
  Sex: Female
  Weight: 60.32 kg

DRUGS (5)
  1. ICAR-C [Concomitant]
     Indication: ANAEMIA
     Dosage: UNK, 1X/DAY:QD (1.0 TAB)
     Route: 048
     Dates: start: 20161121, end: 20161125
  2. TEDUGLUTIDE [Suspect]
     Active Substance: TEDUGLUTIDE
     Indication: SHORT-BOWEL SYNDROME
     Dosage: 1.8 MG, 1X/DAY:QD
     Route: 058
     Dates: start: 20160901, end: 20161001
  3. JUVEN [Concomitant]
     Active Substance: .BETA.-HYDROXYISOVALERIC ACID\ARGININE\GLUTAMINE
     Indication: MALNUTRITION
     Dosage: 1.0 IU, 2X/DAY:BID
     Route: 048
     Dates: start: 20161118, end: 20161125
  4. FOLIC ACID. [Concomitant]
     Active Substance: FOLIC ACID
     Indication: ANAEMIA
     Dosage: 1.0 MG, 1X/DAY:QD
     Route: 048
     Dates: start: 20161121, end: 20161130
  5. KLOR-CON [Concomitant]
     Active Substance: POTASSIUM CHLORIDE
     Indication: ELECTROLYTE IMBALANCE
     Dosage: UNK, AS REQ^D (40.0 UNKNOWN)
     Route: 048
     Dates: start: 20161121, end: 20161125

REACTIONS (1)
  - Cervix carcinoma recurrent [Fatal]

NARRATIVE: CASE EVENT DATE: 20161223
